FAERS Safety Report 9928842 (Version 2)
Quarter: 2015Q1

REPORT INFORMATION
  Report Type: Spontaneous
  Country: US (occurrence: US)
  Receive Date: 20140227
  Receipt Date: 20150203
  Transmission Date: 20150721
  Serious: Yes (Death, Life-Threatening, Hospitalization, Other)
  Sender: FDA-Public Use
  Company Number: US-MERCK-1402USA011304

PATIENT
  Sex: Male
  Weight: 113.38 kg

DRUGS (3)
  1. JANUVIA [Suspect]
     Active Substance: SITAGLIPTIN PHOSPHATE
     Indication: TYPE 2 DIABETES MELLITUS
     Dosage: 100 MG, QD
     Route: 048
     Dates: start: 20100517, end: 20101218
  2. BYETTA [Suspect]
     Active Substance: EXENATIDE
     Indication: TYPE 2 DIABETES MELLITUS
  3. JANUVIA [Suspect]
     Active Substance: SITAGLIPTIN PHOSPHATE
     Dosage: 100 MG, QD
     Route: 048
     Dates: start: 20110213, end: 20111119

REACTIONS (15)
  - Adenocarcinoma pancreas [Fatal]
  - Hypokalaemia [Unknown]
  - Malignant ascites [Unknown]
  - Dyspnoea [Unknown]
  - Chest pain [Unknown]
  - Gastrointestinal haemorrhage [Unknown]
  - Dizziness [Unknown]
  - Helicobacter infection [Unknown]
  - Back pain [Unknown]
  - Haemolytic anaemia [Unknown]
  - Muscle spasms [Unknown]
  - Visual acuity reduced [Unknown]
  - Diagnostic aspiration [Unknown]
  - Diagnostic aspiration [Unknown]
  - Haemorrhage [Unknown]

NARRATIVE: CASE EVENT DATE: 20111001
